FAERS Safety Report 6609151-4 (Version None)
Quarter: 2010Q1

REPORT INFORMATION
  Report Type: 
  Country: None (occurrence: None)
  Receive Date: 20100226
  Receipt Date: 20100226
  Transmission Date: 20100710
  Serious: Yes (Hospitalization)
  Sender: FDA-Public Use
  Company Number: None

PATIENT
  Sex: Male
  Weight: 113 kg

DRUGS (2)
  1. VECURONIUM BROMIDE [Suspect]
     Indication: CHILLS
     Dosage: 7.76MG EVERY 2 HRS PRN IV BOLUS
     Route: 040
     Dates: start: 20100222, end: 20100223
  2. PROPOFOL [Suspect]
     Indication: SEDATION
     Dosage: 20.65MG CURRENTLY CONTINUOS IV DRIP
     Route: 041
     Dates: start: 20100222, end: 20100223

REACTIONS (1)
  - BRADYCARDIA [None]
